FAERS Safety Report 9898068 (Version 1)
Quarter: 2014Q1

REPORT INFORMATION
  Report Type: Spontaneous
  Country: BR (occurrence: BR)
  Receive Date: 20140214
  Receipt Date: 20140214
  Transmission Date: 20141002
  Serious: Yes (Other)
  Sender: FDA-Public Use
  Company Number: BR-MERCK-1402BRA006667

PATIENT
  Sex: Female
  Weight: 60 kg

DRUGS (1)
  1. DESALEX [Suspect]
     Indication: ALLERGY PROPHYLAXIS
     Dosage: 5 MG, PRN
     Route: 048

REACTIONS (2)
  - Caesarean section [Unknown]
  - Exposure during pregnancy [Unknown]
